FAERS Safety Report 8580613-6 (Version None)
Quarter: 2012Q3

REPORT INFORMATION
  Report Type: 
  Country: None (occurrence: None)
  Receive Date: 20120809
  Receipt Date: 20120806
  Transmission Date: 20120928
  Serious: Yes (Death, Other)
  Sender: FDA-Public Use
  Company Number: SI-AMGEN-SVNSP2012042706

PATIENT
  Age: 90 Year
  Sex: Female

DRUGS (2)
  1. DORETONSIN [Concomitant]
     Indication: BACK PAIN
     Dosage: UNK
     Dates: start: 20111206
  2. PROLIA [Suspect]
     Indication: OSTEOPOROSIS
     Dosage: 60 MG, Q6MO
     Route: 058
     Dates: start: 20111222

REACTIONS (5)
  - URINARY TRACT INFECTION [None]
  - LYMPHADENOPATHY [None]
  - MALAISE [None]
  - NON-HODGKIN'S LYMPHOMA [None]
  - PYREXIA [None]
